FAERS Safety Report 19221919 (Version 1)
Quarter: 2021Q2

REPORT INFORMATION
  Report Type: Spontaneous
  Country: PL (occurrence: PL)
  Receive Date: 20210506
  Receipt Date: 20210506
  Transmission Date: 20210717
  Serious: Yes (Hospitalization, Other)
  Sender: FDA-Public Use
  Company Number: PL-TAKEDA-2021TUS026781

PATIENT
  Sex: Male

DRUGS (2)
  1. INFLIXIMAB [Concomitant]
     Active Substance: INFLIXIMAB
     Indication: CROHN^S DISEASE
     Dosage: UNK
     Dates: start: 20191021, end: 20201210
  2. ENTYVIO [Suspect]
     Active Substance: VEDOLIZUMAB
     Indication: CROHN^S DISEASE
     Dosage: 300 MILLIGRAM
     Route: 042
     Dates: start: 20200211

REACTIONS (5)
  - Large intestinal stenosis [Unknown]
  - Colonic abscess [Unknown]
  - Crohn^s disease [Unknown]
  - Colon neoplasm [Unknown]
  - Malaise [Unknown]

NARRATIVE: CASE EVENT DATE: 202006
